FAERS Safety Report 7033093-6 (Version None)
Quarter: 2010Q4

REPORT INFORMATION
  Report Type: 
  Country: None (occurrence: None)
  Receive Date: 20101005
  Receipt Date: 20100923
  Transmission Date: 20110411
  Serious: Yes (Other)
  Sender: FDA-Public Use
  Company Number: UK-ACCORD-003445

PATIENT
  Age: 4 Year
  Sex: Male

DRUGS (1)
  1. TOPIRAMATE [Suspect]
     Indication: GRAND MAL CONVULSION
     Dosage: 125.00-MG-

REACTIONS (2)
  - AGEUSIA [None]
  - ANOSMIA [None]
